FAERS Safety Report 10038004 (Version 1)
Quarter: 2014Q1

REPORT INFORMATION
  Report Type: Spontaneous
  Country: US (occurrence: None)
  Receive Date: 20140306
  Receipt Date: 20140306
  Transmission Date: 20141002
  Serious: Yes (Hospitalization)
  Sender: FDA-Public Use
  Company Number: 163-21880-13102214

PATIENT
  Age: 72 Year
  Sex: Female
  Weight: 105.5 kg

DRUGS (28)
  1. REVLIMID (LENALIDOMIDE) (CAPSULES) [Suspect]
     Indication: PLASMA CELL MYELOMA
     Dosage: 21 IN 28 D
     Route: 048
     Dates: start: 20130718
  2. MLN9708/PLACEBO [Suspect]
     Indication: PLASMA CELL MYELOMA
     Dosage: 3 IN 28 D
     Route: 048
     Dates: start: 201307
  3. DEXAMETHASONE (DEXAMETHASONE) (TABLETS) [Suspect]
     Indication: PLASMA CELL MYELOMA
     Route: 048
     Dates: start: 20130718
  4. ACYCLOVIR (ACICLOVIR) (ACICLOVIR) [Concomitant]
  5. ACETAMINOPHEN (PARACETAMOL) [Concomitant]
  6. HYDROCODONE [Concomitant]
  7. NEXIUM (ESOMEPRAZOLE) [Concomitant]
  8. LEXAPRO (ESCITALOPRAM OXALATE) [Concomitant]
  9. ASPRIN (ACETYLSALICYLIC ACID) [Concomitant]
  10. PRAVASTATIN [Concomitant]
  11. LEVOTHYROXINE [Concomitant]
  12. WARFARIN [Concomitant]
  13. RESTORIL (TEMAZEPAM) [Concomitant]
  14. TOPAMAX (TOPIRAMATE) [Concomitant]
  15. SYNTHROID (LEVOTHYROXINE SODIUM) [Concomitant]
  16. METOPROLOL [Concomitant]
  17. ONDANSETRON [Concomitant]
  18. DIPHENHYDRAMINE [Concomitant]
  19. LORAZEPAM [Concomitant]
  20. PROMETHAZINE [Concomitant]
  21. PEPCID (FAMOTIDINE) [Concomitant]
  22. LOMOTIL [Concomitant]
  23. MILK OF MAGNESIUM (MAGNESIUM HYDROXIDE) [Concomitant]
  24. PERIDEX (CHLORPHEXIDINE GLUCONATE) [Concomitant]
  25. CLOTRIMAZOLE [Concomitant]
  26. LORTAB (VICODIN) [Concomitant]
  27. OMEGA 3 (FISH OIL) [Concomitant]
  28. PANTOPRAZOLE [Concomitant]

REACTIONS (1)
  - Phlebitis superficial [None]
